FAERS Safety Report 5187088-8 (Version None)
Quarter: 2006Q4

REPORT INFORMATION
  Report Type: 
  Country: None (occurrence: None)
  Receive Date: 20061214
  Receipt Date: 20061129
  Transmission Date: 20070319
  Serious: Yes (Disabling)
  Sender: FDA-Public Use
  Company Number: S05-FRA-00506-01

PATIENT
  Age: 20 Year
  Sex: Female
  Weight: 32 kg

DRUGS (1)
  1. CITALOPRAM HYDROBROMIDE [Suspect]
     Dosage: 8 MG QD PO
     Route: 048
     Dates: start: 20041024, end: 20041102

REACTIONS (2)
  - BONE MARROW FAILURE [None]
  - BONE MARROW NECROSIS [None]
